FAERS Safety Report 16305202 (Version 1)
Quarter: 2019Q2

REPORT INFORMATION
  Report Type: Spontaneous
  Country: US (occurrence: US)
  Receive Date: 20190408
  Receipt Date: 20190408
  Transmission Date: 20190711
  Serious: No
  Sender: FDA-Public Use
  Company Number: None

PATIENT
  Age: 74 Year
  Sex: Female

DRUGS (2)
  1. SILDENAFIL TAB [Suspect]
     Active Substance: SILDENAFIL
     Dates: start: 20190304
  2. OPSUMIT [Concomitant]
     Active Substance: MACITENTAN

REACTIONS (1)
  - Fluid retention [None]

NARRATIVE: CASE EVENT DATE: 20190408
